FAERS Safety Report 21917158 (Version 1)
Quarter: 2023Q1

REPORT INFORMATION
  Report Type: Spontaneous
  Country: None (occurrence: GB)
  Receive Date: 20230126
  Receipt Date: 20230126
  Transmission Date: 20230417
  Serious: Yes (Death, Hospitalization)
  Sender: FDA-Public Use
  Company Number: GB-B.Braun Medical Inc.-2137043

PATIENT
  Age: 53 Year
  Sex: Male

DRUGS (12)
  1. METRONIDAZOLE [Suspect]
     Active Substance: METRONIDAZOLE
  2. GENTAMICIN [Suspect]
     Active Substance: GENTAMICIN
  3. ACETAMINOPHEN [Suspect]
     Active Substance: ACETAMINOPHEN
  4. OMEPRAZOLE [Suspect]
     Active Substance: OMEPRAZOLE
  5. DICLOFENAC [Suspect]
     Active Substance: DICLOFENAC
  6. AUGMENTIN [Suspect]
     Active Substance: AMOXICILLIN\CLAVULANATE POTASSIUM
  7. METOCLOPRAMIDE [Suspect]
     Active Substance: METOCLOPRAMIDE
  8. LEVOFLOXACIN [Suspect]
     Active Substance: LEVOFLOXACIN
  9. AMOXICILLIN [Suspect]
     Active Substance: AMOXICILLIN
  10. CLAVULANIC ACID [Suspect]
     Active Substance: CLAVULANIC ACID
  11. VANCOMYCIN HYDROCHLORIDE [Suspect]
     Active Substance: VANCOMYCIN HYDROCHLORIDE
  12. TPN ELECTROLYTES [Suspect]
     Active Substance: CALCIUM CHLORIDE\MAGNESIUM CHLORIDE\POTASSIUM CHLORIDE\SODIUM ACETATE ANHYDROUS\SODIUM CHLORIDE

REACTIONS (5)
  - Disorientation [Fatal]
  - Acquired aminoaciduria [Fatal]
  - Metabolic acidosis [Fatal]
  - Fistula [Fatal]
  - Myocardial infarction [Fatal]
